FAERS Safety Report 5334245-3 (Version None)
Quarter: 2007Q2

REPORT INFORMATION
  Report Type: 
  Country: None (occurrence: None)
  Receive Date: 20070523
  Receipt Date: 20070523
  Transmission Date: 20071010
  Serious: Yes (Life-Threatening)
  Sender: FDA-Public Use
  Company Number: None

PATIENT
  Age: 33 Year
  Sex: Male
  Weight: 95.709 kg

DRUGS (3)
  1. BUPROPION HCL 150MG GLAXOSMITHKLINE [Suspect]
     Indication: SMOKING CESSATION THERAPY
     Dosage: 150MG QD X 3D, THEN BID PO (DURATION: 21.5 D-AM DOSE ONLY)
     Route: 048
     Dates: start: 20070221, end: 20070316
  2. NICOTINE 21MG/24HR PATCH [Concomitant]
  3. NAPROXEN [Concomitant]

REACTIONS (15)
  - DIARRHOEA [None]
  - DRUG HYPERSENSITIVITY [None]
  - DRUG WITHDRAWAL SYNDROME [None]
  - FEELING ABNORMAL [None]
  - LIP SWELLING [None]
  - OEDEMA PERIPHERAL [None]
  - PAIN [None]
  - PERIORBITAL OEDEMA [None]
  - PYREXIA [None]
  - RASH ERYTHEMATOUS [None]
  - RASH MACULO-PAPULAR [None]
  - RASH PRURITIC [None]
  - SKIN HAEMORRHAGE [None]
  - SKIN IRRITATION [None]
  - URTICARIA [None]
